FAERS Safety Report 10184865 (Version 2)
Quarter: 2014Q3

REPORT INFORMATION
  Report Type: Spontaneous
  Country: US (occurrence: None)
  Receive Date: 20140519
  Receipt Date: 20140807
  Transmission Date: 20150326
  Serious: Yes (Death, Other)
  Sender: FDA-Public Use
  Company Number: TPU2014-00113

PATIENT
  Age: 86 Year
  Sex: Male

DRUGS (5)
  1. LIDODERM [Suspect]
     Active Substance: LIDOCAINE
     Indication: PAIN
     Route: 061
  2. SANCUSO (GRANISETRON HYDROCHLORIDE) [Concomitant]
  3. VOLTAREN GEL (DICLOFENAC) (GEL) [Concomitant]
  4. FENTORA [Suspect]
     Active Substance: FENTANYL CITRATE
     Indication: BACK PAIN
     Dosage: BU
  5. MS CONTIN (MORPHINE SULFATE) [Concomitant]

REACTIONS (5)
  - Prostate cancer [None]
  - Coronary artery bypass [None]
  - Cardiac disorder [None]
  - Myocardial infarction [None]
  - Death [None]

NARRATIVE: CASE EVENT DATE: 200311
